FAERS Safety Report 7968243-8 (Version None)
Quarter: 2011Q4

REPORT INFORMATION
  Report Type: 
  Country: None (occurrence: None)
  Receive Date: 20111209
  Receipt Date: 20111130
  Transmission Date: 20120403
  Serious: Yes (Other)
  Sender: FDA-Public Use
  Company Number: PHHY2011FR105666

PATIENT
  Sex: Female

DRUGS (5)
  1. VOLTAREN [Suspect]
     Indication: BACK PAIN
     Dosage: 1 DF, DAILY
     Route: 048
     Dates: start: 20110711, end: 20110718
  2. ACETAMINOPHEN [Suspect]
     Indication: BACK PAIN
     Dosage: 500 MG, UNK
  3. LEVOTHYROXINE SODIUM [Concomitant]
     Dosage: 75 MG, UNK
  4. PANOS [Suspect]
     Indication: BACK PAIN
     Dosage: 50 MG, UNK
  5. ACETAMINOPHEN AND CODEINE PHOSPHATE [Suspect]
     Indication: BACK PAIN

REACTIONS (8)
  - JAUNDICE [None]
  - CHILLS [None]
  - CHOLESTASIS [None]
  - NAUSEA [None]
  - LOSS OF CONSCIOUSNESS [None]
  - MIXED LIVER INJURY [None]
  - VOMITING [None]
  - CHOLANGIOLITIS [None]
